FAERS Safety Report 18502384 (Version 1)
Quarter: 2020Q4

REPORT INFORMATION
  Report Type: Spontaneous
  Country: US (occurrence: US)
  Receive Date: 20201113
  Receipt Date: 20201113
  Transmission Date: 20210114
  Serious: No
  Sender: FDA-Public Use
  Company Number: US-AMGEN-USASP2020183712

PATIENT
  Age: 40 Year
  Sex: Male

DRUGS (1)
  1. OTEZLA [Suspect]
     Active Substance: APREMILAST
     Indication: DEPRESSION
     Dosage: 30 MILLIGRAM, BID
     Route: 065
     Dates: start: 202010

REACTIONS (3)
  - Off label use [Unknown]
  - Erection increased [Unknown]
  - Penile swelling [Unknown]

NARRATIVE: CASE EVENT DATE: 2020
